FAERS Safety Report 9192379 (Version 1)
Quarter: 2013Q1

REPORT INFORMATION
  Report Type: Spontaneous
  Country: TW (occurrence: TW)
  Receive Date: 20130327
  Receipt Date: 20130327
  Transmission Date: 20140127
  Serious: Yes (Other)
  Sender: FDA-Public Use
  Company Number: TW-JNJFOC-20130314955

PATIENT
  Sex: 0

DRUGS (2)
  1. ULTRACET [Suspect]
     Indication: ANKYLOSING SPONDYLITIS
     Dosage: ONE TABLET TWICE A DAY
     Route: 048
  2. ACECLOFENAC [Suspect]
     Indication: ANKYLOSING SPONDYLITIS
     Dosage: 100 MG TWICE A DAY
     Route: 048

REACTIONS (1)
  - Urinary tract infection [Unknown]
